FAERS Safety Report 7362248-6 (Version None)
Quarter: 2011Q1

REPORT INFORMATION
  Report Type: 
  Country: None (occurrence: None)
  Receive Date: 20110318
  Receipt Date: 20110221
  Transmission Date: 20110831
  Serious: No
  Sender: FDA-Public Use
  Company Number: US-B.I. PHARMACEUTICALS,INC./RIDGEFIELD-2011-BP-06427BP

PATIENT
  Age: 74 Year
  Sex: Female

DRUGS (12)
  1. PRADAXA [Suspect]
     Indication: ATRIAL FIBRILLATION
     Dosage: 300 MG
     Route: 048
     Dates: start: 20110201
  2. KLOR-CON [Concomitant]
  3. GLYBURIDE [Concomitant]
     Indication: DIABETES MELLITUS
  4. SIMVASTATIN [Concomitant]
     Indication: BLOOD CHOLESTEROL INCREASED
     Dosage: 20 MG
  5. VITAMIN B COMPLEX CAP [Concomitant]
     Indication: SUPPLEMENTATION THERAPY
  6. LISINOPRIL [Concomitant]
     Indication: HYPERTENSION
     Dosage: 5 MG
  7. FUROSEMIDE [Concomitant]
     Indication: CARDIAC FAILURE CONGESTIVE
  8. CALCIUM WITH CITRATE [Concomitant]
     Indication: SUPPLEMENTATION THERAPY
  9. CARVEDILOL [Concomitant]
     Dosage: 6.25 MG
  10. FUROSEMIDE [Concomitant]
     Indication: DIURETIC THERAPY
     Dosage: 20 MG
  11. DIGOXIN [Concomitant]
     Indication: ATRIAL FIBRILLATION
  12. FISH OIL [Concomitant]
     Indication: SUPPLEMENTATION THERAPY

REACTIONS (2)
  - HAEMATURIA [None]
  - URINE OUTPUT DECREASED [None]
